FAERS Safety Report 19638617 (Version 2)
Quarter: 2021Q3

REPORT INFORMATION
  Report Type: Report from Study
  Country: US (occurrence: US)
  Receive Date: 20210730
  Receipt Date: 20210920
  Transmission Date: 20211014
  Serious: Yes (Other)
  Sender: FDA-Public Use
  Company Number: US-UCBSA-2021011482

PATIENT
  Sex: Female

DRUGS (1)
  1. LACOSAMIDE. [Suspect]
     Active Substance: LACOSAMIDE
     Indication: SEIZURE
     Dosage: 100MG, 1 TAB AM AND 2 TABS PM

REACTIONS (6)
  - Disturbance in attention [Not Recovered/Not Resolved]
  - Syncope [Unknown]
  - Cerebral disorder [Not Recovered/Not Resolved]
  - Product availability issue [Unknown]
  - Product use issue [Unknown]
  - Therapy interrupted [Unknown]
